APPROVED DRUG PRODUCT: AZILECT
Active Ingredient: RASAGILINE MESYLATE
Strength: EQ 0.5MG BASE
Dosage Form/Route: TABLET;ORAL
Application: N021641 | Product #001 | TE Code: AB
Applicant: TEVA NEUROSCIENCE INC
Approved: May 16, 2006 | RLD: Yes | RS: No | Type: RX

PATENTS:
Patent 7815942 | Expires: Aug 27, 2027
Patent 7572834 | Expires: Dec 5, 2026